FAERS Safety Report 7690677-X (Version None)
Quarter: 2011Q3

REPORT INFORMATION
  Report Type: 
  Country: None (occurrence: None)
  Receive Date: 20110818
  Receipt Date: 20110816
  Transmission Date: 20111222
  Serious: Yes (Other)
  Sender: FDA-Public Use
  Company Number: US-PFIZER INC-2011096888

PATIENT
  Sex: Female

DRUGS (9)
  1. NEXIUM [Concomitant]
     Indication: GASTROOESOPHAGEAL REFLUX DISEASE
     Dosage: UNK
     Route: 048
  2. NEURONTIN [Concomitant]
     Indication: HYPOAESTHESIA
     Dosage: UNK
  3. NEURONTIN [Concomitant]
     Indication: PARAESTHESIA
  4. FLUCONAZOLE [Concomitant]
     Indication: VULVOVAGINAL MYCOTIC INFECTION
     Dosage: UNK
     Route: 048
  5. CLOBETASOL [Concomitant]
     Indication: VULVOVAGINAL MYCOTIC INFECTION
     Dosage: UNK
     Route: 061
  6. SOLU-MEDROL [Suspect]
     Indication: MULTIPLE SCLEROSIS
     Dosage: 1000 MG, MONTHLY
     Route: 042
     Dates: start: 20080201
  7. REBIF [Suspect]
     Indication: MULTIPLE SCLEROSIS
     Dosage: 44 UG, 3X WEEKLY
     Route: 058
     Dates: start: 20080826
  8. CELEXA [Concomitant]
     Indication: DEPRESSION
     Dosage: UNK
     Dates: start: 20060101
  9. CLOBETASOL [Concomitant]
     Indication: LICHEN SCLEROSUS

REACTIONS (8)
  - INJECTION SITE PAIN [None]
  - IMMUNOSUPPRESSION [None]
  - ANXIETY [None]
  - PARAESTHESIA [None]
  - OESOPHAGEAL CANDIDIASIS [None]
  - SINUSITIS [None]
  - INSOMNIA [None]
  - FEELING JITTERY [None]
